FAERS Safety Report 10785176 (Version 1)
Quarter: 2015Q1

REPORT INFORMATION
  Report Type: Spontaneous
  Country: None (occurrence: None)
  Receive Date: 20150209
  Receipt Date: 20150209
  Transmission Date: 20150721
  Serious: Yes (Hospitalization)
  Sender: FDA-Public Use
  Company Number: DK-SEPTODONT-201402468

PATIENT
  Age: 51 Year
  Sex: Male

DRUGS (1)
  1. SCANDONEST PLAIN [Suspect]
     Active Substance: MEPIVACAINE HYDROCHLORIDE
     Indication: DENTAL CARE
     Route: 004
     Dates: start: 20110822, end: 20110822

REACTIONS (8)
  - Local swelling [None]
  - Discomfort [None]
  - General physical health deterioration [None]
  - Cognitive disorder [None]
  - Hypertension [None]
  - Swelling [None]
  - Cerebral haemorrhage [None]
  - Seizure [None]

NARRATIVE: CASE EVENT DATE: 20110822
